FAERS Safety Report 5723005-7 (Version None)
Quarter: 2008Q2

REPORT INFORMATION
  Report Type: 
  Country: None (occurrence: None)
  Receive Date: 20080430
  Receipt Date: 20080218
  Transmission Date: 20081010
  Serious: Yes (Hospitalization)
  Sender: FDA-Public Use
  Company Number: SE-BAYER-200815240GPV

PATIENT
  Age: 44 Year
  Sex: Female

DRUGS (2)
  1. MIRENA [Suspect]
     Indication: DRUG USE FOR UNKNOWN INDICATION
     Dosage: TOTAL DAILY DOSE: 20 ?G
     Route: 015
  2. SELECTIVE SEROTONIN REUPTAKE INHIBITORS [Concomitant]
     Indication: DEPRESSION
     Route: 065

REACTIONS (2)
  - HERPES SIMPLEX [None]
  - SALPINGITIS [None]
